FAERS Safety Report 11356266 (Version 2)
Quarter: 2015Q3

REPORT INFORMATION
  Report Type: Spontaneous
  Country: US (occurrence: US)
  Receive Date: 20150807
  Receipt Date: 20150817
  Transmission Date: 20151125
  Serious: No
  Sender: FDA-Public Use
  Company Number: US-PFIZER INC-2015260672

PATIENT
  Sex: Female

DRUGS (1)
  1. RAMIPRIL. [Suspect]
     Active Substance: RAMIPRIL
     Dosage: UNK

REACTIONS (2)
  - Fatigue [Unknown]
  - Drug effect incomplete [Unknown]
